FAERS Safety Report 7732014-8 (Version None)
Quarter: 2011Q3

REPORT INFORMATION
  Report Type: 
  Country: None (occurrence: None)
  Receive Date: 20110906
  Receipt Date: 20110725
  Transmission Date: 20111222
  Serious: No
  Sender: FDA-Public Use
  Company Number: US-AMGEN-USASP2011037896

PATIENT
  Sex: Female

DRUGS (1)
  1. PROLIA [Suspect]
     Indication: OSTEOPOROSIS POSTMENOPAUSAL
     Dosage: UNK
     Dates: start: 20110601

REACTIONS (2)
  - OEDEMA PERIPHERAL [None]
  - BACK PAIN [None]
